FAERS Safety Report 24012773 (Version 1)
Quarter: 2024Q2

REPORT INFORMATION
  Report Type: Spontaneous
  Country: US (occurrence: US)
  Receive Date: 20240626
  Receipt Date: 20240626
  Transmission Date: 20240716
  Serious: Yes (Other)
  Sender: FDA-Public Use
  Company Number: US-JNJFOC-20240346050

PATIENT
  Sex: Male

DRUGS (2)
  1. REMICADE [Interacting]
     Active Substance: INFLIXIMAB
     Indication: Product used for unknown indication
     Route: 041
  2. XELJANZ [Interacting]
     Active Substance: TOFACITINIB CITRATE
     Indication: Product used for unknown indication
     Route: 065

REACTIONS (5)
  - Cataract [Unknown]
  - Brain fog [Unknown]
  - Neuralgia [Not Recovered/Not Resolved]
  - Memory impairment [Unknown]
  - Drug interaction [Unknown]
